FAERS Safety Report 24353660 (Version 5)
Quarter: 2025Q1

REPORT INFORMATION
  Report Type: Report from Study
  Country: US (occurrence: US)
  Receive Date: 20240923
  Receipt Date: 20250207
  Transmission Date: 20250409
  Serious: Yes (Hospitalization, Other)
  Sender: SUNOVION
  Company Number: US-SUMITOMO PHARMA SWITZERLAND GMBH-2024SPA002540

PATIENT

DRUGS (2)
  1. ORGOVYX [Suspect]
     Active Substance: RELUGOLIX
     Indication: Prostate cancer
     Dosage: 120 MG, QD
     Route: 048
     Dates: start: 20240311
  2. HYDROCORTISONE [Concomitant]
     Active Substance: HYDROCORTISONE
     Route: 065

REACTIONS (12)
  - Cerebrovascular accident [Unknown]
  - Brain neoplasm [Unknown]
  - Lung neoplasm malignant [Unknown]
  - Pulmonary oedema [Unknown]
  - Colon cancer [Unknown]
  - Weight decreased [Unknown]
  - Full blood count abnormal [Unknown]
  - Gastric bypass [Unknown]
  - Joint injury [Unknown]
  - Fall [Unknown]
  - Blood glucose decreased [Unknown]
  - Incorrect dose administered [Unknown]

NARRATIVE: CASE EVENT DATE: 20241119
